FAERS Safety Report 5506013-0 (Version None)
Quarter: 2007Q4

REPORT INFORMATION
  Report Type: 
  Country: None (occurrence: None)
  Receive Date: 20071101
  Receipt Date: 20071101
  Transmission Date: 20080405
  Serious: Yes (Death)
  Sender: FDA-Public Use
  Company Number: None

PATIENT
  Age: 45 Year
  Sex: Male

DRUGS (1)
  1. LABETALOL HCL [Suspect]
     Indication: HYPERTENSION
     Dosage: 40 MG Q8H IV
     Route: 042
     Dates: start: 20070603, end: 20070603

REACTIONS (5)
  - CARDIO-RESPIRATORY ARREST [None]
  - HYPOTENSION [None]
  - LOSS OF CONSCIOUSNESS [None]
  - NO THERAPEUTIC RESPONSE [None]
  - VOMITING [None]
